FAERS Safety Report 20612629 (Version 21)
Quarter: 2023Q2

REPORT INFORMATION
  Report Type: Other
  Country: GB (occurrence: GB)
  Receive Date: 20220318
  Receipt Date: 20230614
  Transmission Date: 20230721
  Serious: Yes (Hospitalization)
  Sender: FDA-Public Use
  Company Number: GB-ROCHE-3048873

PATIENT
  Age: 45 Year
  Sex: Female
  Weight: 80 kg

DRUGS (41)
  1. TRASTUZUMAB [Suspect]
     Active Substance: TRASTUZUMAB
     Indication: Breast cancer metastatic
     Route: 041
     Dates: start: 20151217, end: 20160308
  2. TRASTUZUMAB [Suspect]
     Active Substance: TRASTUZUMAB
     Route: 042
     Dates: start: 20150803, end: 20150803
  3. TRASTUZUMAB [Suspect]
     Active Substance: TRASTUZUMAB
     Route: 042
     Dates: start: 20160623
  4. TRASTUZUMAB [Suspect]
     Active Substance: TRASTUZUMAB
     Route: 042
     Dates: start: 20150105, end: 20150105
  5. TRASTUZUMAB [Suspect]
     Active Substance: TRASTUZUMAB
     Route: 042
     Dates: start: 20150130, end: 20161003
  6. PERTUZUMAB [Suspect]
     Active Substance: PERTUZUMAB
     Indication: Breast cancer metastatic
     Route: 042
     Dates: start: 20151217, end: 20160308
  7. PERTUZUMAB [Suspect]
     Active Substance: PERTUZUMAB
     Dosage: 840 MG, 1X (LOADING DOSE)
     Route: 042
     Dates: start: 20160623, end: 20160623
  8. PERTUZUMAB [Suspect]
     Active Substance: PERTUZUMAB
     Dosage: MAINTAINANCE DOSE
     Route: 042
     Dates: start: 20150825, end: 20151117
  9. PERTUZUMAB [Suspect]
     Active Substance: PERTUZUMAB
     Dosage: MAINTAINANCE DOSE
     Route: 042
     Dates: start: 20160715
  10. PERTUZUMAB [Suspect]
     Active Substance: PERTUZUMAB
     Dosage: ONE CYCLE (LOADING DOSE)
     Route: 042
     Dates: start: 20150804, end: 20150804
  11. PERTUZUMAB [Suspect]
     Active Substance: PERTUZUMAB
     Route: 042
     Dates: start: 20150102, end: 20150102
  12. PERTUZUMAB [Suspect]
     Active Substance: PERTUZUMAB
     Route: 042
     Dates: start: 20150130, end: 20161024
  13. TRASTUZUMAB [Suspect]
     Active Substance: TRASTUZUMAB
     Indication: Breast cancer metastatic
     Dosage: LOADING DOSE
     Route: 058
     Dates: start: 20151217, end: 20160308
  14. TRASTUZUMAB [Suspect]
     Active Substance: TRASTUZUMAB
     Route: 058
     Dates: start: 20150803, end: 20150803
  15. TRASTUZUMAB [Suspect]
     Active Substance: TRASTUZUMAB
     Route: 058
     Dates: start: 20160623
  16. TRASTUZUMAB [Suspect]
     Active Substance: TRASTUZUMAB
     Route: 058
     Dates: start: 20150825, end: 20151117
  17. TRASTUZUMAB [Suspect]
     Active Substance: TRASTUZUMAB
     Route: 058
     Dates: start: 20160308, end: 20160308
  18. TRASTUZUMAB [Suspect]
     Active Substance: TRASTUZUMAB
     Route: 058
     Dates: start: 20160723
  19. DOCETAXEL [Suspect]
     Active Substance: DOCETAXEL
     Indication: Breast cancer metastatic
     Route: 042
     Dates: start: 20150814, end: 20151117
  20. DOCETAXEL [Suspect]
     Active Substance: DOCETAXEL
     Route: 065
     Dates: start: 20150217, end: 20160308
  21. DOCETAXEL [Suspect]
     Active Substance: DOCETAXEL
     Route: 065
     Dates: start: 20150814, end: 20151117
  22. DOCETAXEL [Suspect]
     Active Substance: DOCETAXEL
     Route: 042
     Dates: start: 20150808, end: 20151117
  23. DOCETAXEL [Suspect]
     Active Substance: DOCETAXEL
     Route: 042
     Dates: start: 20150804, end: 20150804
  24. DOCETAXEL [Suspect]
     Active Substance: DOCETAXEL
     Route: 042
     Dates: start: 20151217, end: 20160308
  25. DOCETAXEL [Suspect]
     Active Substance: DOCETAXEL
     Route: 042
     Dates: start: 20150106, end: 20150424
  26. EXEMESTANE [Suspect]
     Active Substance: EXEMESTANE
     Indication: Breast cancer metastatic
     Route: 048
     Dates: start: 20150518
  27. EXEMESTANE [Suspect]
     Active Substance: EXEMESTANE
     Indication: Metastases to bone
     Route: 065
     Dates: start: 20180723
  28. ANASTROZOLE [Suspect]
     Active Substance: ANASTROZOLE
     Indication: Product used for unknown indication
     Route: 048
     Dates: start: 20150616
  29. CALCIUM [Concomitant]
     Active Substance: CALCIUM
  30. DENOSUMAB [Concomitant]
     Active Substance: DENOSUMAB
     Route: 058
     Dates: start: 20160127
  31. DENOSUMAB [Concomitant]
     Active Substance: DENOSUMAB
     Route: 058
     Dates: start: 20150803
  32. BENZYDAMINE [Concomitant]
     Active Substance: BENZYDAMINE
  33. DEXAMETHASONE [Concomitant]
     Active Substance: DEXAMETHASONE
     Route: 048
     Dates: start: 20150803
  34. XGEVA [Concomitant]
     Active Substance: DENOSUMAB
     Indication: Product used for unknown indication
     Dosage: UNK UNK, Q3WK
     Route: 058
     Dates: start: 20150803
  35. XGEVA [Concomitant]
     Active Substance: DENOSUMAB
     Dosage: 120 MG, 1/MONTH (CUMULATIVE DOSE: 1564.0 MG)
     Route: 058
     Dates: start: 20160127, end: 201802
  36. XGEVA [Concomitant]
     Active Substance: DENOSUMAB
     Dosage: 120 MG, 1/MONTH (CUMULATIVE DOSE: 716.1667 MG)
     Route: 058
     Dates: start: 20160127, end: 201802
  37. XGEVA [Concomitant]
     Active Substance: DENOSUMAB
     Dosage: 24 MILLIGRAM EVERY 3 DAYS (CUMULATIVE DOSE: 16.0 MG)
     Route: 058
     Dates: start: 20150803
  38. XGEVA [Concomitant]
     Active Substance: DENOSUMAB
     Dosage: 1 EVERY 3 WEEKS; 3 DAYS 2 WEEKS
     Dates: start: 20150803
  39. BENZYDAMINE HYDROCHLORIDE [Concomitant]
     Active Substance: BENZYDAMINE HYDROCHLORIDE
     Indication: Product used for unknown indication
     Dates: start: 20150315, end: 20150817
  40. IBANDRONIC ACID [Concomitant]
     Active Substance: IBANDRONIC ACID
     Route: 048
     Dates: start: 20150518
  41. IRON [Concomitant]
     Active Substance: IRON
     Indication: Serum ferritin decreased
     Route: 048
     Dates: start: 20170927

REACTIONS (20)
  - Vascular device infection [Recovered/Resolved]
  - Vascular device infection [Recovered/Resolved]
  - Ejection fraction decreased [Recovered/Resolved]
  - Osteonecrosis of jaw [Not Recovered/Not Resolved]
  - Fatigue [Recovered/Resolved]
  - Lymphoedema [Recovered/Resolved]
  - Gingival swelling [Recovered/Resolved]
  - Influenza like illness [Recovered/Resolved]
  - Mucosal inflammation [Recovered/Resolved]
  - Ejection fraction decreased [Recovered/Resolved]
  - Epistaxis [Recovered/Resolved]
  - Hot flush [Unknown]
  - Gastrooesophageal reflux disease [Recovered/Resolved]
  - Alopecia [Recovered/Resolved]
  - Rash [Recovered/Resolved]
  - Ejection fraction decreased [Recovered/Resolved]
  - Fatigue [Recovered/Resolved]
  - Fatigue [Not Recovered/Not Resolved]
  - Anaemia [Recovered/Resolved]
  - Diarrhoea [Recovered/Resolved]

NARRATIVE: CASE EVENT DATE: 20150801
